FAERS Safety Report 17871071 (Version 1)
Quarter: 2020Q2

REPORT INFORMATION
  Report Type: Spontaneous
  Country: US (occurrence: US)
  Receive Date: 20200608
  Receipt Date: 20200608
  Transmission Date: 20200714
  Serious: No
  Sender: FDA-Public Use
  Company Number: NVSC2020US154666

PATIENT
  Age: 74 Year
  Sex: Male

DRUGS (1)
  1. COSENTYX [Suspect]
     Active Substance: SECUKINUMAB
     Indication: CYTOKINE STORM
     Dosage: 300 MG, QW
     Route: 058
     Dates: start: 20200301, end: 20200321

REACTIONS (1)
  - Drug ineffective for unapproved indication [Unknown]
